FAERS Safety Report 8609905-9 (Version None)
Quarter: 2012Q3

REPORT INFORMATION
  Report Type: 
  Country: None (occurrence: None)
  Receive Date: 20120821
  Receipt Date: 20120816
  Transmission Date: 20120928
  Serious: No
  Sender: FDA-Public Use
  Company Number: US-PFIZER INC-2012201281

PATIENT
  Sex: Female

DRUGS (5)
  1. MECLIZINE [Concomitant]
     Dosage: UNK
  2. MELATONIN [Concomitant]
     Dosage: UNK
  3. XANAX [Concomitant]
     Dosage: UNK
  4. LYRICA [Suspect]
     Dosage: UNK
  5. AMBIEN [Concomitant]
     Dosage: UNK

REACTIONS (1)
  - DIZZINESS [None]
